FAERS Safety Report 8508886-6 (Version None)
Quarter: 2012Q3

REPORT INFORMATION
  Report Type: 
  Country: None (occurrence: None)
  Receive Date: 20120713
  Receipt Date: 20120712
  Transmission Date: 20120928
  Serious: Yes (Life-Threatening, Hospitalization, Other)
  Sender: FDA-Public Use
  Company Number: US-BAYER-2012-069577

PATIENT
  Age: 84 Year
  Sex: Female

DRUGS (1)
  1. GADAVIST [Suspect]
     Indication: NUCLEAR MAGNETIC RESONANCE IMAGING BRAIN
     Dosage: 6.5 ML, ONCE
     Dates: start: 20120710, end: 20120710

REACTIONS (6)
  - PULSE ABSENT [None]
  - SYNCOPE [None]
  - RESPIRATORY ARREST [None]
  - CARDIO-RESPIRATORY ARREST [None]
  - CYANOSIS [None]
  - ANAPHYLACTIC REACTION [None]
